FAERS Safety Report 4739323-5 (Version None)
Quarter: 2005Q3

REPORT INFORMATION
  Report Type: 
  Country: None (occurrence: None)
  Receive Date: 20050810
  Receipt Date: 20050120
  Transmission Date: 20060218
  Serious: No
  Sender: FDA-Public Use
  Company Number: US-GLAXOSMITHKLINE-A0541523A

PATIENT
  Age: 54 Year
  Sex: Male

DRUGS (5)
  1. PAXIL [Suspect]
     Indication: DEPRESSION
     Route: 048
     Dates: start: 19950101
  2. WELLBUTRIN [Suspect]
     Indication: DEPRESSION
     Route: 048
  3. NEURONTIN [Concomitant]
  4. WELLBUTRIN [Concomitant]
  5. ADVAIR DISKUS 100/50 [Concomitant]

REACTIONS (6)
  - BODY TEMPERATURE DECREASED [None]
  - DRUG INEFFECTIVE [None]
  - SKIN ODOUR ABNORMAL [None]
  - THIRST [None]
  - URINE ODOUR ABNORMAL [None]
  - WEIGHT INCREASED [None]
